FAERS Safety Report 8239663 (Version 9)
Quarter: 2012Q4

REPORT INFORMATION
  Report Type: 
  Country: US (occurrence: US)
  Receive Date: 20111110
  Receipt Date: 20120913
  Transmission Date: 20130627
  Serious: Yes (Hospitalization, Disabling, Other)
  Sender: FDA-Public Use
  Company Number: US-009507513-1111USA00987

PATIENT

DRUGS (5)
  1. FOSAMAX [Suspect]
     Indication: OSTEOPOROSIS
     Dosage: 10 mg, UNK
     Route: 048
     Dates: start: 1998, end: 200010
  2. FOSAMAX [Suspect]
     Dosage: 70 mg, QW
     Route: 048
     Dates: start: 200010, end: 20080225
  3. FOSAMAX [Suspect]
     Indication: OSTEOPOROSIS
     Dosage: 70 mg, UNK
     Route: 048
     Dates: start: 200802, end: 200908
  4. FOSAMAX [Suspect]
     Indication: OSTEOPOROSIS
     Dosage: 70 mg, UNK
     Route: 048
     Dates: start: 20090623, end: 20090718
  5. FOSAMAX [Suspect]
     Dosage: 70 mg, UNK
     Route: 048
     Dates: start: 20090812

REACTIONS (39)
  - Femur fracture [Recovered/Resolved]
  - Low turnover osteopathy [Not Recovered/Not Resolved]
  - Fall [Unknown]
  - Tonsillar disorder [Unknown]
  - Parathyroid disorder [Unknown]
  - Limb asymmetry [Unknown]
  - Blood pressure increased [Unknown]
  - Blood cholesterol increased [Unknown]
  - Hypothyroidism [Unknown]
  - Adverse event [Unknown]
  - Lumbar spinal stenosis [Not Recovered/Not Resolved]
  - Ureteral disorder [Unknown]
  - Arthritis [Unknown]
  - Cataract [Unknown]
  - Groin pain [Unknown]
  - Body height decreased [Unknown]
  - Fibula fracture [Unknown]
  - Scoliosis [Not Recovered/Not Resolved]
  - Bone disorder [Unknown]
  - Postmenopausal haemorrhage [Unknown]
  - Hot flush [Unknown]
  - Smear cervix abnormal [Unknown]
  - Pelvic prolapse [Unknown]
  - Adnexa uteri mass [Unknown]
  - Atrophic vulvovaginitis [Unknown]
  - Glaucoma [Unknown]
  - Weight fluctuation [Unknown]
  - Type 2 diabetes mellitus [Unknown]
  - Hyperparathyroidism [Unknown]
  - Interstitial lung disease [Unknown]
  - Foreign body [Unknown]
  - Dyslipidaemia [Unknown]
  - Back pain [Not Recovered/Not Resolved]
  - Bone pain [Unknown]
  - Arthralgia [Unknown]
  - Pain in extremity [Unknown]
  - Pain in extremity [Unknown]
  - Sciatica [Unknown]
  - Intramedullary rod insertion [Unknown]
